FAERS Safety Report 10045825 (Version 1)
Quarter: 2014Q1

REPORT INFORMATION
  Report Type: Spontaneous
  Country: FR (occurrence: FR)
  Receive Date: 20140328
  Receipt Date: 20140328
  Transmission Date: 20141002
  Serious: Yes (Life-Threatening, Hospitalization)
  Sender: FDA-Public Use
  Company Number: FR-ASTRAZENECA-2014SE21138

PATIENT
  Age: 71 Year
  Sex: Male

DRUGS (7)
  1. CRESTOR [Suspect]
     Route: 048
     Dates: start: 201306, end: 20130927
  2. GLUCOPHAGE [Suspect]
     Route: 048
     Dates: end: 20130927
  3. NOVONORM [Concomitant]
     Dates: start: 201306
  4. TRIATEC [Concomitant]
     Dates: start: 201306
  5. PERMIXON [Concomitant]
  6. ZOXAN [Concomitant]
  7. XALACOM [Concomitant]
     Dosage: 1 DROP PER EYE AT NIGHT

REACTIONS (6)
  - Tubulointerstitial nephritis [Recovered/Resolved with Sequelae]
  - Renal failure acute [Recovered/Resolved]
  - Lactic acidosis [Recovered/Resolved]
  - Coma [Unknown]
  - Hypotension [Unknown]
  - Hypoglycaemia [Unknown]
